FAERS Safety Report 8454901-8 (Version None)
Quarter: 2012Q2

REPORT INFORMATION
  Report Type: 
  Country: None (occurrence: None)
  Receive Date: 20120615
  Receipt Date: 20120615
  Transmission Date: 20120825
  Serious: Yes (Other)
  Sender: FDA-Public Use
  Company Number: None

PATIENT
  Age: 67 Year
  Sex: Female

DRUGS (3)
  1. AVELOX [Suspect]
     Indication: INFECTION
     Dosage: 400MG ONCE ORAL
     Route: 048
     Dates: start: 20120608
  2. AMLODIPINE [Concomitant]
  3. LISINOPRIL [Concomitant]

REACTIONS (9)
  - ARTHRALGIA [None]
  - LYMPHADENOPATHY [None]
  - URTICARIA [None]
  - SKIN EXFOLIATION [None]
  - SWELLING FACE [None]
  - EYE SWELLING [None]
  - CONFUSIONAL STATE [None]
  - SENSATION OF PRESSURE [None]
  - HEADACHE [None]
